FAERS Safety Report 8478225-8 (Version None)
Quarter: 2012Q2

REPORT INFORMATION
  Report Type: 
  Country: None (occurrence: None)
  Receive Date: 20120629
  Receipt Date: 20120625
  Transmission Date: 20120825
  Serious: Yes (Other)
  Sender: FDA-Public Use
  Company Number: PHFR2010GB01428

PATIENT
  Sex: Male

DRUGS (7)
  1. DOMPERIDONE [Concomitant]
     Dosage: 10 MG, TID
     Route: 048
  2. ARIPIPRAZOLE [Concomitant]
     Dosage: 10 MG, QD
     Route: 048
     Dates: start: 20100914
  3. VENLAFAXINE [Concomitant]
     Dosage: 225 MG, QD
     Route: 048
  4. OMEPRAZOLE [Concomitant]
     Dosage: 20 MG, QD
     Route: 048
  5. SIMVASTATIN [Concomitant]
     Dosage: 40 MG, QD (NOCTE)
     Route: 048
  6. CLOZARIL [Suspect]
     Indication: SCHIZOPHRENIA
     Route: 048
     Dates: start: 20091014
  7. PREGABALIN [Concomitant]
     Dosage: 300 MG, BID
     Route: 048

REACTIONS (5)
  - DIFFERENTIAL WHITE BLOOD CELL COUNT ABNORMAL [None]
  - GENERAL PHYSICAL CONDITION ABNORMAL [None]
  - WHITE BLOOD CELL COUNT INCREASED [None]
  - LOWER RESPIRATORY TRACT INFECTION [None]
  - NEUTROPHIL COUNT INCREASED [None]
